FAERS Safety Report 9203752 (Version 1)
Quarter: 2013Q1

REPORT INFORMATION
  Report Type: Spontaneous
  Country: CA (occurrence: None)
  Receive Date: 20130329
  Receipt Date: 20130329
  Transmission Date: 20140127
  Serious: Yes (Hospitalization)
  Sender: FDA-Public Use
  Company Number: SYM-2013-02143

PATIENT
  Age: 16 Year
  Sex: Female

DRUGS (1)
  1. CARDIZEM [Suspect]
     Indication: PRODUCT USED FOR UNKNOWN INDICATION
     Route: 048
     Dates: start: 19980309, end: 19980309

REACTIONS (37)
  - Overdose [None]
  - Hypotension [None]
  - Cardiac arrest [None]
  - Renal failure [None]
  - Dialysis [None]
  - Nausea [None]
  - Dizziness [None]
  - Nodal arrhythmia [None]
  - Treatment failure [None]
  - Hypoxia [None]
  - Confusional state [None]
  - Dyspnoea [None]
  - Productive cough [None]
  - Sputum discoloured [None]
  - Pulmonary oedema [None]
  - Calcium ionised decreased [None]
  - Blood potassium decreased [None]
  - Hyperglycaemia [None]
  - Hyperlactacidaemia [None]
  - Blood pH decreased [None]
  - Blood bicarbonate decreased [None]
  - Dialysis [None]
  - Hepatic function abnormal [None]
  - Aspartate aminotransferase increased [None]
  - Alanine aminotransferase increased [None]
  - Coagulopathy [None]
  - Toxicity to various agents [None]
  - Ileus [None]
  - Pupil fixed [None]
  - Encephalopathy [None]
  - Mediastinal haemorrhage [None]
  - Atrioventricular dissociation [None]
  - Mediastinal haematoma [None]
  - Cardiotoxicity [None]
  - Vasodilatation [None]
  - No therapeutic response [None]
  - Drug clearance decreased [None]
